FAERS Safety Report 12750455 (Version 2)
Quarter: 2016Q4

REPORT INFORMATION
  Report Type: Report from Study
  Country: None (occurrence: AR)
  Receive Date: 20160915
  Receipt Date: 20161031
  Transmission Date: 20170207
  Serious: Yes (Hospitalization, Other)
  Sender: FDA-Public Use
  Company Number: AR-ABBVIE-16K-007-1728359-00

PATIENT
  Age: 40 Year
  Sex: Male

DRUGS (1)
  1. HUMIRA [Suspect]
     Active Substance: ADALIMUMAB
     Indication: RHEUMATOID ARTHRITIS
     Route: 058
     Dates: start: 20160118, end: 201604

REACTIONS (4)
  - Disseminated tuberculosis [Recovering/Resolving]
  - Night sweats [Recovering/Resolving]
  - Cough [Recovering/Resolving]
  - Atypical mycobacterial infection [Recovering/Resolving]

NARRATIVE: CASE EVENT DATE: 201605
